FAERS Safety Report 18747068 (Version 2)
Quarter: 2021Q1

REPORT INFORMATION
  Report Type: Report from Study
  Country: CZ (occurrence: CZ)
  Receive Date: 20210115
  Receipt Date: 20210116
  Transmission Date: 20210419
  Serious: Yes (Other)
  Sender: FDA-Public Use
  Company Number: CZ-TEVA-2020-CZ-1840100

PATIENT
  Age: 53 Year
  Sex: Female

DRUGS (2)
  1. ZODAC 10 MG [Concomitant]
  2. COPAXONE [Suspect]
     Active Substance: GLATIRAMER ACETATE
     Indication: CLINICALLY ISOLATED SYNDROME
     Dosage: COPAXONE 40 MG/ML
     Route: 058
     Dates: start: 20191129

REACTIONS (7)
  - Tremor [Not Recovered/Not Resolved]
  - Fear of injection [Not Recovered/Not Resolved]
  - Chills [Not Recovered/Not Resolved]
  - Musculoskeletal stiffness [Not Recovered/Not Resolved]
  - Fatigue [Not Recovered/Not Resolved]
  - Dyspnoea [Not Recovered/Not Resolved]
  - Immediate post-injection reaction [Not Recovered/Not Resolved]

NARRATIVE: CASE EVENT DATE: 202009
